FAERS Safety Report 13261389 (Version 1)
Quarter: 2017Q1

REPORT INFORMATION
  Report Type: Spontaneous
  Country: US (occurrence: US)
  Receive Date: 20170222
  Receipt Date: 20170222
  Transmission Date: 20170428
  Serious: No
  Sender: FDA-Public Use
  Company Number: US-009507513-1702USA000965

PATIENT
  Age: 69 Year
  Sex: Male

DRUGS (1)
  1. SINEMET [Suspect]
     Active Substance: CARBIDOPA\LEVODOPA
     Indication: PARKINSON^S DISEASE
     Dosage: ONE AND HALF TABLET, THREE TIMES DAILY
     Route: 048

REACTIONS (3)
  - Constipation [Unknown]
  - Drug effect decreased [Unknown]
  - Urticaria [Unknown]
